FAERS Safety Report 6382446-8 (Version None)
Quarter: 2009Q3

REPORT INFORMATION
  Report Type: 
  Country: None (occurrence: None)
  Receive Date: 20090928
  Receipt Date: 20090928
  Transmission Date: 20100115
  Serious: Yes (Hospitalization)
  Sender: FDA-Public Use
  Company Number: None

PATIENT
  Sex: Male
  Weight: 12.9 kg

DRUGS (3)
  1. ONCASPAR [Suspect]
     Dosage: 1400 MG
     Dates: end: 20090923
  2. VINCRISTINE SULFATE [Suspect]
     Dosage: .8MG
     Dates: end: 20090922
  3. METHOTREXATE [Suspect]
     Dosage: 68 MG
     Dates: end: 20090922

REACTIONS (1)
  - HYPERGLYCAEMIA [None]
